FAERS Safety Report 20725751 (Version 1)
Quarter: 2022Q2

REPORT INFORMATION
  Report Type: Spontaneous
  Country: US (occurrence: US)
  Receive Date: 20220419
  Receipt Date: 20220419
  Transmission Date: 20220721
  Serious: No
  Sender: FDA-Public Use
  Company Number: US-SA-SAC20220413000372

PATIENT
  Sex: Female

DRUGS (6)
  1. AUBAGIO [Suspect]
     Active Substance: TERIFLUNOMIDE
     Indication: Multiple sclerosis
     Dosage: 14 MG, QD
     Route: 048
  2. TOPIRAMATE [Suspect]
     Active Substance: TOPIRAMATE
  3. CORTISONE [Concomitant]
     Active Substance: CORTISONE
     Indication: Eczema
  4. FLUTICASONE [Concomitant]
     Active Substance: FLUTICASONE
     Dosage: UNK UNK, PRN
  5. ROPINIROLE [Concomitant]
     Active Substance: ROPINIROLE
  6. ESTROGENS [Concomitant]
     Active Substance: ESTROGENS
     Indication: Hot flush
     Dosage: UNK

REACTIONS (2)
  - Platelet count decreased [Unknown]
  - Hot flush [Unknown]
